FAERS Safety Report 11477559 (Version 1)
Quarter: 2015Q3

REPORT INFORMATION
  Report Type: Spontaneous
  Country: SK (occurrence: SK)
  Receive Date: 20150909
  Receipt Date: 20150909
  Transmission Date: 20151125
  Serious: Yes (Death, Hospitalization, Other)
  Sender: FDA-Public Use
  Company Number: SK-ROCHE-1623501

PATIENT
  Sex: Female
  Weight: 53 kg

DRUGS (9)
  1. OLICARD [Concomitant]
  2. AVASTIN [Suspect]
     Active Substance: BEVACIZUMAB
     Indication: LUNG ADENOCARCINOMA
     Route: 042
     Dates: start: 20140502, end: 20150416
  3. PACLITAXEL. [Concomitant]
     Active Substance: PACLITAXEL
     Route: 065
     Dates: start: 201403
  4. CARBOPLATIN. [Concomitant]
     Active Substance: CARBOPLATIN
     Route: 065
     Dates: start: 201403
  5. IBALGIN [Concomitant]
     Active Substance: IBUPROFEN
     Dosage: LAST DOSE MAY/2015
     Route: 048
     Dates: start: 201401
  6. FRAXIPARINE [Concomitant]
     Active Substance: NADROPARIN CALCIUM
     Dosage: LAST DOSE MAY/2015
     Route: 058
     Dates: start: 201401
  7. TORVACARD [Concomitant]
     Active Substance: ATORVASTATIN CALCIUM
  8. NOVALGIN (SLOVAKIA) [Concomitant]
     Dosage: LAST DOSE MAY/2015
     Route: 048
     Dates: start: 201401
  9. CORONAL [Concomitant]

REACTIONS (5)
  - Intestinal haemorrhage [Unknown]
  - Melaena [Unknown]
  - Haemorrhage [Unknown]
  - Death [Fatal]
  - Transient ischaemic attack [Unknown]

NARRATIVE: CASE EVENT DATE: 201504
